FAERS Safety Report 11330607 (Version 1)
Quarter: 2015Q3

REPORT INFORMATION
  Report Type: Spontaneous
  Country: US (occurrence: None)
  Receive Date: 20150731
  Receipt Date: 20150731
  Transmission Date: 20151125
  Serious: No
  Sender: FDA-Public Use
  Company Number: None

PATIENT
  Age: 20 Year
  Sex: Female

DRUGS (1)
  1. ORENCIA [Suspect]
     Active Substance: ABATACEPT
     Indication: RHEUMATOID ARTHRITIS
     Dosage: Q7DAYS
     Route: 058
     Dates: start: 201207, end: 20150729

REACTIONS (1)
  - Immunodeficiency [None]

NARRATIVE: CASE EVENT DATE: 20150729
